FAERS Safety Report 24620923 (Version 1)
Quarter: 2024Q4

REPORT INFORMATION
  Report Type: Spontaneous
  Country: US (occurrence: None)
  Receive Date: 20241114
  Receipt Date: 20241114
  Transmission Date: 20250115
  Serious: No
  Sender: Public
  Company Number: None

PATIENT
  Age: 55 Year
  Sex: Female

DRUGS (1)
  1. BREYANZI [Suspect]
     Active Substance: LISOCABTAGENE MARALEUCEL
     Dates: start: 20240809

REACTIONS (2)
  - Immune effector cell-associated neurotoxicity syndrome [None]
  - Aphasia [None]

NARRATIVE: CASE EVENT DATE: 20240814
